FAERS Safety Report 5035009-0 (Version None)
Quarter: 2006Q2

REPORT INFORMATION
  Report Type: 
  Country: None (occurrence: None)
  Receive Date: 20060519
  Receipt Date: 20060328
  Transmission Date: 20061013
  Serious: No
  Sender: FDA-Public Use
  Company Number: TPA2005A01476

PATIENT
  Age: 58 Year
  Sex: Male
  Weight: 77.1115 kg

DRUGS (5)
  1. ROZEREM [Suspect]
     Indication: INSOMNIA
     Dosage: 8 MG, PER ORAL
     Route: 048
     Dates: start: 20050928, end: 20051019
  2. DEXTROAMPHETAMINE (DEXAMFETAMINE) [Concomitant]
  3. XANAX [Concomitant]
  4. DIAZEPAM [Concomitant]
  5. ATOMOXETINE (ATOMOXETINE) [Concomitant]

REACTIONS (2)
  - COPROLALIA [None]
  - SOMNOLENCE [None]
